FAERS Safety Report 4618072-8 (Version None)
Quarter: 2005Q1

REPORT INFORMATION
  Report Type: 
  Country: None (occurrence: None)
  Receive Date: 20050322
  Receipt Date: 20050315
  Transmission Date: 20050727
  Serious: Yes (Hospitalization)
  Sender: FDA-Public Use
  Company Number: 2004027440

PATIENT
  Age: 50 Year
  Sex: Male

DRUGS (12)
  1. LIPITOR [Suspect]
     Indication: HYPERCHOLESTEROLAEMIA
     Dosage: 10 MG (1 IN 1 D), ORAL
     Route: 048
     Dates: start: 20040325
  2. RANITIDINE HYDROCHLORIDE [Concomitant]
  3. ASPIRIN [Concomitant]
  4. CANDESARTAN CILEXETIL (CANDESARTAN CILEXETIL0 [Concomitant]
  5. TICLOPIDINE HCL [Concomitant]
  6. ISOSORBIDE MONONITRATE [Concomitant]
  7. NICORANDIL (NICORANDIL) [Concomitant]
  8. WARFARIN SODIUM [Concomitant]
  9. RABEPRAZOLE SODIUM [Concomitant]
  10. FERROUS CITRATE [Concomitant]
  11. TEPRENONE (TEPRENONE) [Concomitant]
  12. PIPERACILLIN SODIUM [Concomitant]

REACTIONS (13)
  - BLOOD UREA INCREASED [None]
  - BLOOD URIC ACID INCREASED [None]
  - CARDIAC FAILURE [None]
  - CARDIOMEGALY [None]
  - CHOKING SENSATION [None]
  - GENERAL PHYSICAL HEALTH DETERIORATION [None]
  - INFECTION [None]
  - NASOPHARYNGITIS [None]
  - PALPITATIONS [None]
  - PLEURAL EFFUSION [None]
  - PNEUMONIA [None]
  - PULMONARY CONGESTION [None]
  - WEIGHT DECREASED [None]
